FAERS Safety Report 10053294 (Version 3)
Quarter: 2014Q4

REPORT INFORMATION
  Report Type: Spontaneous
  Country: BR (occurrence: BR)
  Receive Date: 20140402
  Receipt Date: 20141107
  Transmission Date: 20150528
  Serious: Yes (Hospitalization, Other)
  Sender: FDA-Public Use
  Company Number: PHHY2014BR034914

PATIENT
  Age: 72 Year
  Sex: Female
  Weight: 74 kg

DRUGS (2)
  1. EXELON PATCH [Suspect]
     Active Substance: RIVASTIGMINE
     Dosage: 9.5 MG, DAILY
     Route: 062
  2. EXELON PATCH [Suspect]
     Active Substance: RIVASTIGMINE
     Indication: PRODUCT USED FOR UNKNOWN INDICATION
     Dosage: 9.5 MG, DAILY
     Route: 062
     Dates: start: 2013

REACTIONS (11)
  - Dizziness [Recovering/Resolving]
  - Loss of consciousness [Recovered/Resolved]
  - Labyrinthitis [Recovered/Resolved]
  - Exostosis [Recovering/Resolving]
  - Urinary tract infection [Recovered/Resolved]
  - Neck pain [Recovering/Resolving]
  - Fall [Recovered/Resolved]
  - Spinal osteoarthritis [Recovering/Resolving]
  - Musculoskeletal pain [Recovering/Resolving]
  - Cervical spine flattening [Recovering/Resolving]
  - Memory impairment [Not Recovered/Not Resolved]

NARRATIVE: CASE EVENT DATE: 20140218
